FAERS Safety Report 9680768 (Version 3)
Quarter: 2013Q4

REPORT INFORMATION
  Report Type: Spontaneous
  Country: JP (occurrence: JP)
  Receive Date: 20131111
  Receipt Date: 20131213
  Transmission Date: 20140711
  Serious: Yes (Hospitalization)
  Sender: FDA-Public Use
  Company Number: JP-JNJFOC-20131103782

PATIENT
  Age: 81 Year
  Sex: Female

DRUGS (12)
  1. TRAMCET [Suspect]
     Indication: PAIN
     Dosage: 3 PER 1 DAY
     Route: 048
     Dates: start: 20110920, end: 20120118
  2. TRAMCET [Suspect]
     Indication: PAIN
     Dosage: 1 PER 1 DAY
     Route: 048
     Dates: start: 20110826, end: 20110919
  3. ADETPHOS [Concomitant]
     Dosage: 3 PER DAY
     Route: 048
  4. METHYCOBAL [Concomitant]
     Dosage: 3 PER DAY
     Route: 048
  5. CARDENALIN [Concomitant]
     Dosage: 1 PER 1 DAY
     Route: 048
  6. HERBESSER R [Concomitant]
     Dosage: 1 PER 1 DAY
     Route: 048
  7. LOXONIN [Concomitant]
     Route: 048
  8. FERROMIA [Concomitant]
     Dosage: 1 PER 1 DAY
     Route: 048
  9. NAUZELIN [Concomitant]
     Dosage: 3 PER 1 DAY
     Route: 048
  10. MAGLAX [Concomitant]
     Dosage: 1 PER 1 DAY
     Route: 048
  11. VASTAREL F [Concomitant]
     Dosage: 3 PER 1 DAY
     Route: 048
  12. SERENAL [Concomitant]
     Dosage: 3 PER 1 DAY
     Route: 048

REACTIONS (1)
  - Liver disorder [Recovering/Resolving]
